FAERS Safety Report 8759339 (Version 5)
Quarter: 2013Q2

REPORT INFORMATION
  Report Type: Spontaneous
  Country: US (occurrence: US)
  Receive Date: 20120829
  Receipt Date: 20130604
  Transmission Date: 20140414
  Serious: Yes (Hospitalization, Other)
  Sender: FDA-Public Use
  Company Number: US-009507513-1203USA02453

PATIENT
  Sex: Female
  Weight: 163.5 kg

DRUGS (10)
  1. FOSAMAX [Suspect]
     Indication: OSTEOPOROSIS
     Dosage: 10 MG, QD
     Route: 048
     Dates: start: 20001011, end: 200107
  2. FOSAMAX [Suspect]
     Indication: OSTEOPENIA
     Dosage: 70 MG, QW
     Route: 048
     Dates: start: 20010723, end: 200509
  3. BONIVA [Suspect]
     Indication: OSTEOPOROSIS
     Dosage: 150 MG, UNK
     Dates: start: 20051022, end: 2008
  4. BONIVA [Suspect]
     Indication: OSTEOPENIA
  5. SYNTHROID [Concomitant]
     Indication: HYPOTHYROIDISM
     Dosage: 0.5 MG, UNK
     Dates: start: 1993
  6. PREMPRO [Concomitant]
     Indication: HORMONE REPLACEMENT THERAPY
     Dosage: 0.625 MG, UNK
  7. TENORMIN [Concomitant]
     Indication: HYPERTENSION
     Dosage: 50 MG, UNK
  8. NAPROXEN [Concomitant]
     Dosage: 500 MG BID
  9. ALEVE [Concomitant]
     Dosage: UNK, QD
  10. MAXZIDE [Concomitant]
     Dosage: 75-50

REACTIONS (24)
  - Femur fracture [Recovering/Resolving]
  - Intramedullary rod insertion [Unknown]
  - Knee operation [Unknown]
  - Haematocrit decreased [Unknown]
  - Fall [Unknown]
  - Osteopenia [Unknown]
  - Low turnover osteopathy [Unknown]
  - Glucose tolerance impaired [Unknown]
  - Blood cholesterol increased [Unknown]
  - Bunion [Unknown]
  - Haemorrhoids [Unknown]
  - Scoliosis [Unknown]
  - Cataract [Unknown]
  - Osteoarthritis [Unknown]
  - Diverticulum [Unknown]
  - Tonsillectomy [Unknown]
  - Cataract [Unknown]
  - Foot fracture [Unknown]
  - Hiatus hernia [Unknown]
  - Barrett^s oesophagus [Unknown]
  - Vascular calcification [Unknown]
  - Vertigo [Unknown]
  - Back pain [Unknown]
  - Gastrooesophageal reflux disease [Unknown]
